FAERS Safety Report 25904201 (Version 1)
Quarter: 2025Q4

REPORT INFORMATION
  Report Type: Report from Study
  Country: US (occurrence: US)
  Receive Date: 20251010
  Receipt Date: 20251010
  Transmission Date: 20260118
  Serious: Yes (Hospitalization)
  Sender: ROCHE
  Company Number: US-ROCHE-10000399166

PATIENT

DRUGS (9)
  1. RITUXIMAB [Interacting]
     Active Substance: RITUXIMAB
     Indication: Waldenstrom^s macroglobulinaemia
     Route: 065
  2. RITUXIMAB [Interacting]
     Active Substance: RITUXIMAB
     Indication: Plasma cell myeloma
  3. VENETOCLAX [Interacting]
     Active Substance: VENETOCLAX
     Indication: Waldenstrom^s macroglobulinaemia
     Route: 065
  4. VENETOCLAX [Interacting]
     Active Substance: VENETOCLAX
     Indication: Plasma cell myeloma
  5. BENDAMUSTINE [Interacting]
     Active Substance: BENDAMUSTINE
     Indication: Waldenstrom^s macroglobulinaemia
     Route: 065
  6. BENDAMUSTINE [Interacting]
     Active Substance: BENDAMUSTINE
     Indication: Plasma cell myeloma
  7. TOZINAMERAN [Interacting]
     Active Substance: TOZINAMERAN
     Indication: COVID-19 prophylaxis
     Route: 065
  8. ELASOMERAN [Interacting]
     Active Substance: ELASOMERAN
     Indication: COVID-19 prophylaxis
     Route: 065
  9. AD26.COV2.S [Interacting]
     Active Substance: AD26.COV2.S
     Indication: COVID-19 prophylaxis
     Route: 065

REACTIONS (3)
  - COVID-19 [Unknown]
  - Humoral immune defect [Unknown]
  - Vaccine interaction [Unknown]
